FAERS Safety Report 14195345 (Version 1)
Quarter: 2017Q4

REPORT INFORMATION
  Report Type: Spontaneous
  Country: IT (occurrence: IT)
  Receive Date: 20171116
  Receipt Date: 20171116
  Transmission Date: 20180321
  Serious: Yes (Other)
  Sender: FDA-Public Use
  Company Number: IT-ASTRAZENECA-2017SF14653

PATIENT
  Age: 41 Year
  Sex: Female

DRUGS (2)
  1. GEFITINIB. [Suspect]
     Active Substance: GEFITINIB
     Route: 048
  2. OSIMERTINIB. [Suspect]
     Active Substance: OSIMERTINIB
     Route: 048

REACTIONS (7)
  - Malignant neoplasm progression [Unknown]
  - Hepatomegaly [Unknown]
  - Xerosis [Unknown]
  - Metastases to bone [Unknown]
  - Diarrhoea [Unknown]
  - Metastases to pancreas [Unknown]
  - Conjunctivitis [Unknown]
